FAERS Safety Report 13186952 (Version 2)
Quarter: 2017Q1

REPORT INFORMATION
  Report Type: Spontaneous
  Country: US (occurrence: US)
  Receive Date: 20170206
  Receipt Date: 20170220
  Transmission Date: 20170428
  Serious: No
  Sender: FDA-Public Use
  Company Number: US-ELI_LILLY_AND_COMPANY-US201701007310

PATIENT
  Sex: Female

DRUGS (4)
  1. FORTEO [Suspect]
     Active Substance: TERIPARATIDE
     Dosage: UNK UNK, QD
     Route: 065
  2. HYDROXYCHLOROQUINE [Concomitant]
     Active Substance: HYDROXYCHLOROQUINE
  3. FORTEO [Suspect]
     Active Substance: TERIPARATIDE
     Indication: OSTEOPOROSIS
     Dosage: UNK UNK, QD
     Route: 065
     Dates: start: 201611
  4. FORTEO [Suspect]
     Active Substance: TERIPARATIDE
     Dosage: UNK, QD
     Route: 065

REACTIONS (5)
  - Feeling cold [Not Recovered/Not Resolved]
  - Injection site bruising [Recovering/Resolving]
  - Injection site haemorrhage [Not Recovered/Not Resolved]
  - Injection site haemorrhage [Unknown]
  - Chills [Not Recovered/Not Resolved]

NARRATIVE: CASE EVENT DATE: 201612
